FAERS Safety Report 12076557 (Version 2)
Quarter: 2016Q1

REPORT INFORMATION
  Report Type: Report from Study
  Country: PT (occurrence: PT)
  Receive Date: 20160215
  Receipt Date: 20160216
  Transmission Date: 20160526
  Serious: Yes (Hospitalization)
  Sender: FDA-Public Use
  Company Number: PHHY2016PT018785

PATIENT
  Age: 60 Year
  Sex: Male
  Weight: 81.3 kg

DRUGS (2)
  1. GILENYA [Suspect]
     Active Substance: FINGOLIMOD HYDROCHLORIDE
     Indication: MULTIPLE SCLEROSIS
     Dosage: 0.5 MG, QD
     Route: 048
     Dates: start: 20150730, end: 20151218
  2. GABAPENTIN. [Concomitant]
     Active Substance: GABAPENTIN
     Indication: NEURALGIA
     Dosage: UNK
     Route: 065
     Dates: start: 2001

REACTIONS (4)
  - Benign prostatic hyperplasia [Unknown]
  - Dysuria [Unknown]
  - Acute kidney injury [Recovering/Resolving]
  - Urine output decreased [Unknown]

NARRATIVE: CASE EVENT DATE: 20150922
